FAERS Safety Report 5020490-3 (Version None)
Quarter: 2006Q2

REPORT INFORMATION
  Report Type: 
  Country: None (occurrence: None)
  Receive Date: 20060602
  Receipt Date: 20060522
  Transmission Date: 20061013
  Serious: Yes (Hospitalization)
  Sender: FDA-Public Use
  Company Number: TCI2006A02130

PATIENT
  Age: 61 Year
  Sex: Male

DRUGS (5)
  1. TAKEPRON OD TABLETS 15 (LANSOPRAZOLE) [Suspect]
     Indication: REFLUX OESOPHAGITIS
     Dosage: 15 MG (15 MG, 1 - 1 D) PER ORAL
     Route: 048
     Dates: start: 20051201, end: 20060301
  2. OMEPRAZOLE [Suspect]
     Dosage: PER ORAL
     Route: 048
     Dates: start: 20060401
  3. ASPIRIN [Concomitant]
  4. PLETAL [Concomitant]
  5. MUCOSTA (REBAMIPIDE) [Concomitant]

REACTIONS (3)
  - ASTHENIA [None]
  - BLOOD CREATINE PHOSPHOKINASE INCREASED [None]
  - MUSCULAR WEAKNESS [None]
